FAERS Safety Report 16583913 (Version 2)
Quarter: 2019Q3

REPORT INFORMATION
  Report Type: Spontaneous
  Country: JP (occurrence: JP)
  Receive Date: 20190717
  Receipt Date: 20190919
  Transmission Date: 20191004
  Serious: Yes (Other)
  Sender: FDA-Public Use
  Company Number: JP-TEVA-2019-JP-1079831

PATIENT
  Sex: Male

DRUGS (2)
  1. AZILECT [Suspect]
     Active Substance: RASAGILINE MESYLATE
     Dosage: .5 MILLIGRAM DAILY;
     Route: 048
  2. AZILECT [Suspect]
     Active Substance: RASAGILINE MESYLATE
     Indication: PARKINSON^S DISEASE
     Dosage: 1 MILLIGRAM DAILY;
     Route: 048
     Dates: start: 20190604

REACTIONS (1)
  - Parkinson^s disease [Unknown]
